FAERS Safety Report 21453756 (Version 4)
Quarter: 2022Q4

REPORT INFORMATION
  Report Type: Spontaneous
  Country: US (occurrence: US)
  Receive Date: 20221013
  Receipt Date: 20221114
  Transmission Date: 20230112
  Serious: Yes (Other)
  Sender: FDA-Public Use
  Company Number: US-PFIZER INC-202201218772

PATIENT
  Age: 79 Year
  Sex: Female
  Weight: 80.37 kg

DRUGS (2)
  1. RUXIENCE [Suspect]
     Active Substance: RITUXIMAB-PVVR
     Indication: Chronic lymphocytic leukaemia
     Dosage: 700 MG (700MG, 4 DOSES OF 375MG PER METER SQUARED)
     Dates: start: 20221010, end: 20221010
  2. RUXIENCE [Suspect]
     Active Substance: RITUXIMAB-PVVR
     Dosage: 700 MG (700MG, 4 DOSES OF 375MG PER METER SQUARED)
     Dates: start: 20221010, end: 20221010

REACTIONS (8)
  - Hypersensitivity [Unknown]
  - Hot flush [Unknown]
  - Nausea [Unknown]
  - Cold sweat [Unknown]
  - Feeling hot [Unknown]
  - Retching [Unknown]
  - Pruritus [Unknown]
  - Poor quality product administered [Unknown]

NARRATIVE: CASE EVENT DATE: 20221010
